FAERS Safety Report 9609270 (Version 2)
Quarter: 2013Q4

REPORT INFORMATION
  Report Type: Spontaneous
  Country: US (occurrence: US)
  Receive Date: 20131009
  Receipt Date: 20131009
  Transmission Date: 20140711
  Serious: No
  Sender: FDA-Public Use
  Company Number: US-PURDUE-USA-2012-0094808

PATIENT
  Age: 38 Year
  Sex: Female

DRUGS (1)
  1. BUTRANS [Suspect]
     Indication: PAIN
     Dosage: 5 MCG, UNK
     Route: 062
     Dates: start: 20120810, end: 20120926

REACTIONS (3)
  - Viral infection [Unknown]
  - Application site rash [Recovered/Resolved]
  - Application site vesicles [Recovered/Resolved]
